FAERS Safety Report 6208078-X (Version None)
Quarter: 2009Q2

REPORT INFORMATION
  Report Type: 
  Country: None (occurrence: None)
  Receive Date: 20090529
  Receipt Date: 20090422
  Transmission Date: 20091009
  Serious: No
  Sender: FDA-Public Use
  Company Number: US-KINGPHARMUSA00001-K200900477

PATIENT
  Sex: Female
  Weight: 70.295 kg

DRUGS (6)
  1. FLECTOR [Suspect]
     Indication: PAIN
     Dosage: 1 PATCH, BID
     Route: 061
     Dates: start: 20090418, end: 20090419
  2. FLECTOR [Suspect]
     Indication: MYOSITIS
  3. CADUET [Concomitant]
     Indication: HYPERTENSION
     Dosage: UNK
     Route: 048
  4. CADUET [Concomitant]
     Indication: BLOOD CHOLESTEROL INCREASED
  5. ASPIRIN [Concomitant]
     Dosage: UNK
     Route: 048
  6. NEXIUM [Concomitant]
     Indication: REFLUX OESOPHAGITIS
     Dosage: UNK
     Route: 048

REACTIONS (4)
  - DYSPNOEA [None]
  - HYPOAESTHESIA [None]
  - MALAISE [None]
  - NAUSEA [None]
